FAERS Safety Report 6085591-X (Version None)
Quarter: 2009Q1

REPORT INFORMATION
  Report Type: 
  Country: None (occurrence: None)
  Receive Date: 20090220
  Receipt Date: 20090210
  Transmission Date: 20090719
  Serious: Yes (Life-Threatening, Hospitalization)
  Sender: FDA-Public Use
  Company Number: DE-PFIZER INC-2008100638

PATIENT

DRUGS (1)
  1. INSPRA [Suspect]
     Indication: CARDIAC FAILURE
     Dosage: 25 MG, 1X/DAY
     Route: 048

REACTIONS (7)
  - ARTERIAL THROMBOSIS LIMB [None]
  - BLOOD CREATININE INCREASED [None]
  - BLOOD POTASSIUM INCREASED [None]
  - INTERMITTENT CLAUDICATION [None]
  - NECROSIS [None]
  - PERIPHERAL VASCULAR DISORDER [None]
  - THROMBOCYTOPENIA [None]
